FAERS Safety Report 9208981 (Version 2)
Quarter: 2013Q3

REPORT INFORMATION
  Report Type: Spontaneous
  Country: US (occurrence: None)
  Receive Date: 20120817
  Receipt Date: 20130815
  Transmission Date: 20140515
  Serious: No
  Sender: FDA-Public Use
  Company Number: ADR-2012-00846

PATIENT
  Age: 74 Year
  Sex: Male

DRUGS (5)
  1. BACLOFEN INTRATHECAL (BACLOFEN INJECTION) [Suspect]
  2. BACLOFEN INTRATHECAL (BACLOFEN INJECTION) [Suspect]
  3. DILAUDID (HYDROMORPHONE) [Concomitant]
  4. BUPIVACAINE [Concomitant]
  5. DROPERIDOL [Concomitant]

REACTIONS (3)
  - Adverse drug reaction [None]
  - Hyperaesthesia [None]
  - Sedation [None]
